FAERS Safety Report 7549655-3 (Version None)
Quarter: 2011Q2

REPORT INFORMATION
  Report Type: 
  Country: None (occurrence: None)
  Receive Date: 20110615
  Receipt Date: 20110613
  Transmission Date: 20111010
  Serious: Yes (Other)
  Sender: FDA-Public Use
  Company Number: US-AMGEN-USASP2011030409

PATIENT
  Sex: Male

DRUGS (2)
  1. NPLATE [Suspect]
     Indication: THROMBOCYTOPENIA
     Dates: start: 20100614, end: 20100816
  2. ANTINEOPLASTIC AGENTS [Concomitant]

REACTIONS (2)
  - PANCREATITIS [None]
  - SPLENOMEGALY [None]
